FAERS Safety Report 24800060 (Version 1)
Quarter: 2025Q1

REPORT INFORMATION
  Report Type: Spontaneous
  Country: PT (occurrence: PT)
  Receive Date: 20250102
  Receipt Date: 20250102
  Transmission Date: 20250408
  Serious: Yes (Other)
  Sender: MYLAN
  Company Number: PT-MYLANLABS-2024M1116539

PATIENT
  Age: 52 Year
  Sex: Female

DRUGS (1)
  1. ACETAMINOPHEN [Suspect]
     Active Substance: ACETAMINOPHEN
     Indication: Pain
     Dosage: 10 GRAM, QD (24 HOURS)
     Route: 065

REACTIONS (3)
  - Intentional product misuse [Recovering/Resolving]
  - Liver injury [Recovering/Resolving]
  - Intentional overdose [Recovering/Resolving]
